FAERS Safety Report 23977201 (Version 2)
Quarter: 2024Q2

REPORT INFORMATION
  Report Type: Spontaneous
  Country: US (occurrence: US)
  Receive Date: 20240614
  Receipt Date: 20240627
  Transmission Date: 20240716
  Serious: Yes (Other)
  Sender: FDA-Public Use
  Company Number: US-BRISTOL-MYERS SQUIBB COMPANY-2024-092883

PATIENT
  Age: 71 Year
  Sex: Female
  Weight: 56.7 kg

DRUGS (15)
  1. REVLIMID [Suspect]
     Active Substance: LENALIDOMIDE
     Indication: Plasma cell myeloma
     Route: 048
     Dates: start: 20230621
  2. REVLIMID [Suspect]
     Active Substance: LENALIDOMIDE
     Dosage: TAKE 1 CAPSULE (10 MG) BY MOUTH ONCE DAILY FOR 21 DAYS FOR EVERY 28 DAYS WITH WATER.
     Route: 048
  3. REVLIMID [Suspect]
     Active Substance: LENALIDOMIDE
     Dosage: TAKE 1 CAPSULE (10 MG) BY MOUTH ONCE DAILY. DO NOT CRUSH OR OPEN CAPSULE
     Route: 048
  4. REVLIMID [Suspect]
     Active Substance: LENALIDOMIDE
     Dosage: TAKE 1 CAPSULE (10 MG) BY MOUTH ONCE DAILY WITH WATER. DO NOT CRUSH OR OPEN CAPSULE
     Route: 048
  5. REVLIMID [Suspect]
     Active Substance: LENALIDOMIDE
     Dosage: TAKE 1 CAPSULE (25 MG) BY MOUTH ONCE DAILY FOR 21 DAYS ON THEN 7 DAYS OFF WITH WATER. DO NOT CRUSH O
     Route: 048
  6. REVLIMID [Suspect]
     Active Substance: LENALIDOMIDE
     Dosage: TAKE 1 CAPSULE (15 MG) BY MOUTH ONCE DAILY FOR 21 DAYS EVERY 28 DAYS WITH WATER. DO NOT CRUSH OR OPE
     Route: 048
  7. DEXAMETHASONE [Concomitant]
     Active Substance: DEXAMETHASONE
     Indication: Product used for unknown indication
     Route: 048
     Dates: start: 20220718
  8. XGEVA [Concomitant]
     Active Substance: DENOSUMAB
     Indication: Product used for unknown indication
     Dosage: 120 MG/1.7ML
     Dates: start: 20220718
  9. ATORVASTATIN CALCIUM [Concomitant]
     Active Substance: ATORVASTATIN CALCIUM
     Indication: Product used for unknown indication
     Dates: start: 20220615
  10. TYLENOL EXTRA STRENGTH [Concomitant]
     Active Substance: ACETAMINOPHEN
     Indication: Product used for unknown indication
     Dates: start: 20220615
  11. ASPIRIN [Concomitant]
     Active Substance: ASPIRIN
     Indication: Product used for unknown indication
     Dosage: LOW DOSE
     Dates: start: 20220615
  12. VELCADE [Concomitant]
     Active Substance: BORTEZOMIB
     Indication: Product used for unknown indication
     Dosage: 3.5, VI
     Dates: start: 20220615
  13. ONDANSETRON HYDROCHLORIDE [Concomitant]
     Active Substance: ONDANSETRON HYDROCHLORIDE
     Indication: Product used for unknown indication
     Dates: start: 20220610
  14. LORAZEPAM [Concomitant]
     Active Substance: LORAZEPAM
     Indication: Product used for unknown indication
     Dates: start: 20220610
  15. GRANIX [Concomitant]
     Active Substance: TBO-FILGRASTIM
     Dosage: GIVE 300 MCG (0.5 ML) SUBCUTANEOUSLY ONCE WEEKLY FOR 3 WEEKS FOLLOWED BY 1 WEEK OFF
     Route: 058
     Dates: start: 20230807

REACTIONS (1)
  - Haematochezia [Not Recovered/Not Resolved]

NARRATIVE: CASE EVENT DATE: 20240531
